FAERS Safety Report 9233139 (Version 8)
Quarter: 2015Q4

REPORT INFORMATION
  Report Type: Report from Study
  Country: AU (occurrence: AU)
  Receive Date: 20130416
  Receipt Date: 20151007
  Transmission Date: 20160305
  Serious: Yes (Hospitalization, Other)
  Sender: FDA-Public Use
  Company Number: PHHY2013AU035674

PATIENT
  Age: 40 Year
  Sex: Male

DRUGS (7)
  1. FLUPENTIXOL DECANOATE [Concomitant]
     Active Substance: FLUPENTIXOL DECANOATE
     Indication: SCHIZOPHRENIA
     Dosage: 80 MG, QHS
     Route: 030
     Dates: start: 201207
  2. CLOZARIL [Suspect]
     Active Substance: CLOZAPINE
     Indication: SCHIZOPHRENIA
     Dosage: 450 MG, UNK
     Route: 048
     Dates: start: 20121109
  3. GLICLAZIDA MER [Concomitant]
     Indication: DIABETES MELLITUS
     Dosage: 120 MG, QHS
     Route: 048
     Dates: start: 2011
  4. ENDONE [Concomitant]
     Active Substance: OXYCODONE HYDROCHLORIDE
     Indication: PRODUCT USED FOR UNKNOWN INDICATION
     Dosage: UNK
     Route: 048
     Dates: start: 201306
  5. SITAGLIPTIN [Concomitant]
     Active Substance: SITAGLIPTIN
     Indication: DIABETES MELLITUS
     Dosage: 100 MG (MANE)
     Route: 048
     Dates: start: 2012
  6. MAXOLON [Concomitant]
     Active Substance: METOCLOPRAMIDE HYDROCHLORIDE
     Indication: PRODUCT USED FOR UNKNOWN INDICATION
     Dosage: UNK
     Route: 048
     Dates: start: 201306
  7. PANADOL [Concomitant]
     Active Substance: ACETAMINOPHEN
     Indication: PRODUCT USED FOR UNKNOWN INDICATION
     Dosage: UNK
     Route: 048
     Dates: start: 201306

REACTIONS (9)
  - Metastases to lymph nodes [Unknown]
  - Jugular vein thrombosis [Unknown]
  - Hepatitis C [Unknown]
  - Cytopenia [Unknown]
  - Neuroendocrine carcinoma [Not Recovered/Not Resolved]
  - Salivary gland cancer [Not Recovered/Not Resolved]
  - Submandibular mass [Unknown]
  - Neck mass [Unknown]
  - Hodgkin^s disease [Unknown]

NARRATIVE: CASE EVENT DATE: 201304
